FAERS Safety Report 5124121-3 (Version None)
Quarter: 2006Q4

REPORT INFORMATION
  Report Type: 
  Country: None (occurrence: None)
  Receive Date: 20061010
  Receipt Date: 20060125
  Transmission Date: 20070319
  Serious: No
  Sender: FDA-Public Use
  Company Number: US-BRISTOL-MYERS SQUIBB COMPANY-13303128

PATIENT
  Sex: Female

DRUGS (2)
  1. AVAPRO [Suspect]
     Indication: BLOOD PRESSURE
     Route: 048
     Dates: start: 20060101
  2. PLAVIX [Suspect]
     Route: 048
     Dates: start: 20060125

REACTIONS (1)
  - DIZZINESS [None]
